FAERS Safety Report 8849511 (Version 1)
Quarter: 2012Q4

REPORT INFORMATION
  Report Type: 
  Country: US (occurrence: US)
  Receive Date: 20121019
  Receipt Date: 20121019
  Transmission Date: 20130627
  Serious: No
  Sender: FDA-Public Use
  Company Number: US-PFIZER INC-2012257532

PATIENT
  Age: 41 Year
  Sex: Female
  Weight: 86.17 kg

DRUGS (1)
  1. DEPO-PROVERA [Suspect]
     Dosage: UNK, every 3 months
     Dates: start: 2011, end: 201203

REACTIONS (1)
  - Metrorrhagia [Recovered/Resolved]
